FAERS Safety Report 17759708 (Version 3)
Quarter: 2020Q2

REPORT INFORMATION
  Report Type: Spontaneous
  Country: US (occurrence: US)
  Receive Date: 20200508
  Receipt Date: 20200619
  Transmission Date: 20200714
  Serious: No
  Sender: FDA-Public Use
  Company Number: US-JNJFOC-20200507005

PATIENT
  Age: 50 Year
  Sex: Male

DRUGS (2)
  1. STELARA [Suspect]
     Active Substance: USTEKINUMAB
  2. STELARA [Suspect]
     Active Substance: USTEKINUMAB
     Indication: CROHN^S DISEASE
     Dosage: TREATMENT IS ONGOING
     Route: 058
     Dates: start: 201812

REACTIONS (3)
  - Product dose omission [Unknown]
  - Wrong technique in product usage process [Unknown]
  - Syringe issue [Unknown]

NARRATIVE: CASE EVENT DATE: 202005
